FAERS Safety Report 8847072 (Version 1)
Quarter: 2012Q4

REPORT INFORMATION
  Report Type: Spontaneous
  Country: KR (occurrence: None)
  Receive Date: 20121016
  Receipt Date: 20121016
  Transmission Date: 20130627
  Serious: Yes (Other)
  Sender: FDA-Public Use
  Company Number: FK201202963

PATIENT
  Age: 61 Year
  Sex: Female

DRUGS (3)
  1. FLUDARABINE [Suspect]
     Indication: PROPHYLAXIS
  2. ALEMTUZUMAB [Suspect]
     Indication: PROPHYLAXIS
  3. BUSULFAN (BUSULFAN) [Concomitant]

REACTIONS (1)
  - Pneumocystis jiroveci pneumonia [None]
